FAERS Safety Report 9611084 (Version 1)
Quarter: 2013Q4

REPORT INFORMATION
  Report Type: Report from Study
  Country: None (occurrence: US)
  Receive Date: 20131009
  Receipt Date: 20131009
  Transmission Date: 20140711
  Serious: No
  Sender: FDA-Public Use
  Company Number: US-SAVIENT-2013S1000064

PATIENT
  Age: 78 Year
  Sex: Male

DRUGS (5)
  1. KRYSTEXXA [Suspect]
     Indication: PRODUCT USED FOR UNKNOWN INDICATION
     Route: 042
  2. KRYSTEXXA [Suspect]
     Route: 042
  3. COLCHICINE [Concomitant]
     Indication: ALLERGY PROPHYLAXIS
  4. ALLEGRA [Concomitant]
     Indication: ALLERGY PROPHYLAXIS
     Dosage: 2 DOSES PRIOR TO INFUSION
  5. PREDNISONE [Concomitant]
     Indication: ALLERGY PROPHYLAXIS

REACTIONS (1)
  - Therapeutic response decreased [Unknown]
